FAERS Safety Report 19239665 (Version 2)
Quarter: 2021Q2

REPORT INFORMATION
  Report Type: Report from Study
  Country: IT (occurrence: IT)
  Receive Date: 20210510
  Receipt Date: 20210518
  Transmission Date: 20210717
  Serious: Yes (Other)
  Sender: FDA-Public Use
  Company Number: IT-PFIZER INC-2021484511

PATIENT
  Age: 83 Year
  Sex: Female

DRUGS (13)
  1. LEXOTAN [Concomitant]
     Active Substance: BROMAZEPAM
     Dosage: 8 DROP
  2. VALSARTAN. [Concomitant]
     Active Substance: VALSARTAN
     Dosage: UNK
  3. NORVASC [Suspect]
     Active Substance: AMLODIPINE BESYLATE
     Indication: HYPERTENSION
     Dosage: 2 DF, 1X/DAY
  4. METFORMIN [Concomitant]
     Active Substance: METFORMIN HYDROCHLORIDE
     Dosage: UNK
  5. TORVAST [Concomitant]
     Active Substance: ATORVASTATIN
     Dosage: UNK
  6. SINEMET [Concomitant]
     Active Substance: CARBIDOPA\LEVODOPA
     Dosage: UNK
  7. ZYLORIC [Concomitant]
     Active Substance: ALLOPURINOL
     Dosage: UNK
  8. ADESITRIN [Concomitant]
     Active Substance: NITROGLYCERIN
     Dosage: UNK
  9. RIVOTRIL [Concomitant]
     Active Substance: CLONAZEPAM
     Dosage: 8 DROP
  10. LIXIANA [Concomitant]
     Active Substance: EDOXABAN TOSYLATE
     Dosage: UNK
  11. LASIX [Concomitant]
     Active Substance: FUROSEMIDE
     Dosage: UNK
  12. MIRAPEXIN [Concomitant]
     Active Substance: PRAMIPEXOLE
     Dosage: UNK
  13. CARVEDILOL. [Concomitant]
     Active Substance: CARVEDILOL
     Dosage: UNK

REACTIONS (3)
  - Feeling jittery [Recovering/Resolving]
  - Hypertensive crisis [Recovering/Resolving]
  - Incorrect dose administered [Recovering/Resolving]

NARRATIVE: CASE EVENT DATE: 20210401
